FAERS Safety Report 8823171 (Version 2)
Quarter: 2012Q4

REPORT INFORMATION
  Report Type: 
  Country: BR (occurrence: BR)
  Receive Date: 20121003
  Receipt Date: 20121101
  Transmission Date: 20130627
  Serious: Yes (Other)
  Sender: FDA-Public Use
  Company Number: BR-PFIZER INC-2012240431

PATIENT
  Age: 63 Year
  Sex: Female
  Weight: 86 kg

DRUGS (10)
  1. XALATAN [Suspect]
     Indication: GLAUCOMA
     Dosage: 1 Gtt in each eye, 1x/day
     Route: 047
     Dates: start: 1987
  2. AZOPT [Concomitant]
     Indication: EYE DISORDER
     Dosage: 2 Gtt in each eye, 1x/day
     Route: 047
  3. BRINZOLAMIDE [Concomitant]
     Indication: EYE DISORDER
     Dosage: 2 Gtt in each eye, 1x/day
     Route: 047
  4. FRONTAL XR [Concomitant]
     Indication: DEPRESSION
     Dosage: 1 mg, 1x/day
  5. LABIRIN [Concomitant]
     Indication: LABYRINTHITIS
     Dosage: 1 DF (1 tablet) daily
  6. CEDUR - SLOW RELEASE [Concomitant]
     Indication: FUNCTIONAL BLOOD FLOW DISORDER
     Dosage: 1 DF (1 tablet) daily
  7. DIACEREIN [Concomitant]
     Indication: OSTEOARTHROSIS
     Dosage: 50 mg, 1x/day
  8. LOSARTAN POTASSIUM [Concomitant]
     Indication: BLOOD PRESSURE HIGH
     Dosage: 1 DF, 1x/day
  9. METFORMIN HYDROCHLORIDE [Concomitant]
     Indication: DIABETES
     Dosage: 1 DF, 1x/day
  10. SIMVASTATIN [Concomitant]
     Indication: HIGH CHOLESTEROL
     Dosage: 1 DF, 1x/day

REACTIONS (2)
  - Blindness [Not Recovered/Not Resolved]
  - Eye irritation [Not Recovered/Not Resolved]
